FAERS Safety Report 25745676 (Version 1)
Quarter: 2025Q3

REPORT INFORMATION
  Report Type: Spontaneous
  Country: AR (occurrence: AR)
  Receive Date: 20250901
  Receipt Date: 20250901
  Transmission Date: 20251020
  Serious: Yes (Other)
  Sender: ROCHE
  Company Number: AR-ROCHE-10000373282

PATIENT
  Age: 60 Year
  Sex: Male

DRUGS (1)
  1. ATEZOLIZUMAB [Suspect]
     Active Substance: ATEZOLIZUMAB
     Indication: Hepatocellular carcinoma
     Route: 058

REACTIONS (2)
  - Hypertension [Recovered/Resolved]
  - Dyspnoea [Recovered/Resolved]
